FAERS Safety Report 5500797-3 (Version None)
Quarter: 2007Q4

REPORT INFORMATION
  Report Type: 
  Country: None (occurrence: None)
  Receive Date: 20071029
  Receipt Date: 20071025
  Transmission Date: 20080405
  Serious: Yes (Hospitalization)
  Sender: FDA-Public Use
  Company Number: A0689821A

PATIENT
  Age: 67 Year
  Sex: Female

DRUGS (11)
  1. WELLBUTRIN XL [Suspect]
     Indication: BIPOLAR DISORDER
     Dosage: 150MG PER DAY
     Route: 048
     Dates: start: 20070201, end: 20071024
  2. STELAZINE [Suspect]
     Dosage: 10MG PER DAY
     Dates: start: 20070801, end: 20071019
  3. LITHIUM [Suspect]
  4. ABILIFY [Suspect]
     Dosage: 15MG PER DAY
     Dates: end: 20070801
  5. BUPROPION HYDROCHLORIDE [Concomitant]
     Indication: BIPOLAR DISORDER
     Dosage: 300MG PER DAY
     Route: 048
     Dates: start: 20060101, end: 20070201
  6. SYNTHROID [Concomitant]
  7. LISINOPRIL [Concomitant]
  8. FAMOTIDINE [Concomitant]
  9. FUROSEMIDE [Concomitant]
  10. KLOR-CON [Concomitant]
  11. ESTRADIOL [Concomitant]

REACTIONS (12)
  - DEPRESSION [None]
  - DRUG INEFFECTIVE [None]
  - DYSPHAGIA [None]
  - DYSPNOEA [None]
  - GAIT DISTURBANCE [None]
  - LOCAL SWELLING [None]
  - MUSCULAR WEAKNESS [None]
  - MUSCULOSKELETAL STIFFNESS [None]
  - PARANOIA [None]
  - PHARYNGOLARYNGEAL PAIN [None]
  - SPEECH DISORDER [None]
  - UPPER RESPIRATORY TRACT INFECTION [None]
